FAERS Safety Report 5751068-1 (Version None)
Quarter: 2008Q2

REPORT INFORMATION
  Report Type: 
  Country: None (occurrence: None)
  Receive Date: 20080528
  Receipt Date: 20080514
  Transmission Date: 20081010
  Serious: Yes (Other)
  Sender: FDA-Public Use
  Company Number: GB-BAUSCH-2008BL001653

PATIENT
  Age: 47 Year
  Sex: Female

DRUGS (3)
  1. PREDNISOLONE [Suspect]
     Indication: LUPUS PNEUMONITIS
     Dates: start: 19980101, end: 20050101
  2. AZATHIOPRINE [Suspect]
     Indication: LUPUS PNEUMONITIS
     Dates: start: 19980101
  3. CYCLOSPORINE [Suspect]
     Indication: LUPUS PNEUMONITIS
     Dates: start: 19980101, end: 20050101

REACTIONS (2)
  - EPSTEIN-BARR VIRUS INFECTION [None]
  - HODGKIN'S DISEASE [None]
